FAERS Safety Report 4615449-1 (Version None)
Quarter: 2005Q1

REPORT INFORMATION
  Report Type: 
  Country: None (occurrence: None)
  Receive Date: 20050317
  Receipt Date: 20050304
  Transmission Date: 20050727
  Serious: No
  Sender: FDA-Public Use
  Company Number: 2005042062

PATIENT
  Sex: Male

DRUGS (1)
  1. SOMATROPIN (SOMATROPIN) [Suspect]
     Indication: BODY HEIGHT BELOW NORMAL
     Dosage: 0.6 MG (0.6 MG), SUBCUTANEOUS
     Route: 058
     Dates: start: 20050212

REACTIONS (1)
  - CEREBRAL HAEMANGIOMA [None]
